FAERS Safety Report 10699729 (Version 1)
Quarter: 2015Q1

REPORT INFORMATION
  Report Type: Spontaneous
  Country: US (occurrence: US)
  Receive Date: 20150109
  Receipt Date: 20150109
  Transmission Date: 20150721
  Serious: Yes (Death)
  Sender: FDA-Public Use
  Company Number: US-CIPLA LTD.-2014US03053

PATIENT

DRUGS (2)
  1. TH-302 [Suspect]
     Active Substance: EVOFOSFAMIDE
     Indication: PANCREATIC CARCINOMA STAGE IV
     Dosage: 340 MG/M2, OVER 30 TO 60 MINS ON DAYS 1, 8, AND 15 OF EACH 28 DAY CYCLE
  2. GEMCITABINE [Suspect]
     Active Substance: GEMCITABINE\GEMCITABINE HYDROCHLORIDE
     Indication: PANCREATIC CARCINOMA STAGE IV
     Dosage: 1000 MG/M2, 30 MIN IV INFUSION

REACTIONS (1)
  - Completed suicide [Fatal]
